FAERS Safety Report 20114387 (Version 2)
Quarter: 2021Q4

REPORT INFORMATION
  Report Type: Spontaneous
  Country: GB (occurrence: GB)
  Receive Date: 20211125
  Receipt Date: 20211207
  Transmission Date: 20220303
  Serious: Yes (Hospitalization)
  Sender: FDA-Public Use
  Company Number: GB-TEVA-2021-GB-1979913

PATIENT
  Age: 80 Year
  Sex: Male

DRUGS (9)
  1. SIMVASTATIN [Suspect]
     Active Substance: SIMVASTATIN
     Indication: Product used for unknown indication
     Dosage: 40 MILLIGRAM DAILY;
     Route: 065
  2. COCODAMOL [Interacting]
     Active Substance: ACETAMINOPHEN\CODEINE PHOSPHATE
     Indication: Product used for unknown indication
     Dosage: 6 DOSAGE FORMS DAILY; THREE TIME A DAY
     Route: 065
  3. BUTYLSCOPOLAMINE BROMIDE [Interacting]
     Active Substance: BUTYLSCOPOLAMINE BROMIDE
     Indication: Salivary hypersecretion
     Dosage: 8 DOSAGE FORMS DAILY;
     Route: 048
  4. BUTYLSCOPOLAMINE BROMIDE [Interacting]
     Active Substance: BUTYLSCOPOLAMINE BROMIDE
     Dosage: 1MG/72 HOURS AFTER 4 DAYS
     Route: 062
  5. APIXABAN [Concomitant]
     Active Substance: APIXABAN
     Indication: Product used for unknown indication
     Dosage: 10 MILLIGRAM DAILY;
     Route: 065
  6. QUININE SULFATE [Concomitant]
     Active Substance: QUININE SULFATE
     Indication: Product used for unknown indication
     Dosage: 300 MILLIGRAM DAILY;
     Route: 065
  7. PERINDOPRIL [Concomitant]
     Active Substance: PERINDOPRIL
     Indication: Product used for unknown indication
     Dosage: 8 MILLIGRAM DAILY;
     Route: 065
  8. HYALURONIC ACID [Concomitant]
     Active Substance: HYALURONIC ACID
     Indication: Eye lubrication therapy
     Dosage: EYE DROP THREE TIMES A DAY
     Route: 065
  9. XAILIN [Concomitant]
     Indication: Eye lubrication therapy
     Dosage: EYE OINTMENT; ONE TIME A DAY IN THE LEFT EYE
     Route: 065

REACTIONS (12)
  - Tremor [Recovered/Resolved]
  - Agitation [Recovered/Resolved]
  - Confusional state [Recovering/Resolving]
  - Dry skin [Recovering/Resolving]
  - Urinary retention [Recovering/Resolving]
  - Loss of consciousness [Recovering/Resolving]
  - Fall [Recovered/Resolved]
  - Rhabdomyolysis [Recovered/Resolved]
  - Pneumonia aspiration [Recovering/Resolving]
  - Tongue dry [Recovering/Resolving]
  - Tongue discolouration [Recovering/Resolving]
  - Drug interaction [Recovered/Resolved]
